FAERS Safety Report 8777367 (Version 2)
Quarter: 2012Q4

REPORT INFORMATION
  Report Type: 
  Country: US (occurrence: US)
  Receive Date: 20120911
  Receipt Date: 20121105
  Transmission Date: 20130627
  Serious: No
  Sender: FDA-Public Use
  Company Number: US-ROXANE LABORATORIES, INC.-2012-RO-01730RO

PATIENT
  Sex: Female

DRUGS (5)
  1. HYDROMORPHONE [Suspect]
     Indication: PAIN
     Route: 048
     Dates: start: 201208
  2. CYMBALTA [Concomitant]
     Dosage: 60 mg
  3. PREVENTIL [Concomitant]
     Route: 055
  4. OMEPRAZOLE [Concomitant]
     Dosage: 40 mg
  5. TOPIRAMATE [Concomitant]
     Dosage: 150 mg

REACTIONS (2)
  - Drug ineffective [Not Recovered/Not Resolved]
  - Product quality issue [Unknown]
